FAERS Safety Report 7290668-7 (Version None)
Quarter: 2011Q1

REPORT INFORMATION
  Report Type: 
  Country: None (occurrence: None)
  Receive Date: 20110214
  Receipt Date: 20110203
  Transmission Date: 20110831
  Serious: Yes (Hospitalization)
  Sender: FDA-Public Use
  Company Number: SE-ASTRAZENECA-2011SE06266

PATIENT
  Age: 69 Year
  Sex: Male

DRUGS (12)
  1. ENALAPRIL MALEATE [Suspect]
     Indication: ESSENTIAL HYPERTENSION
     Dates: end: 20101216
  2. SPIRONOLAKTON NYCOMED [Suspect]
     Indication: ESSENTIAL HYPERTENSION
     Dates: end: 20101216
  3. METOPROLOL [Suspect]
     Indication: ESSENTIAL HYPERTENSION
  4. DIMETIKON MEDA [Concomitant]
  5. PLENDIL [Concomitant]
  6. METOPROLOL [Suspect]
  7. TROMBYL [Concomitant]
  8. HUMALOG [Concomitant]
     Dosage: 25
  9. ATACAND [Suspect]
     Indication: ESSENTIAL HYPERTENSION
     Route: 048
  10. SIMVASTATIN [Concomitant]
  11. SERTRALIN [Concomitant]
  12. LERGIGAN [Concomitant]

REACTIONS (2)
  - BRADYCARDIA [None]
  - HYPERKALAEMIA [None]
